FAERS Safety Report 10626798 (Version 2)
Quarter: 2014Q4

REPORT INFORMATION
  Report Type: Spontaneous
  Country: US (occurrence: US)
  Receive Date: 20141204
  Receipt Date: 20141212
  Transmission Date: 20150529
  Serious: Yes (Death, Hospitalization, Other)
  Sender: FDA-Public Use
  Company Number: US-UNITED THERAPEUTICS-UNT-2014-011734

PATIENT
  Age: 70 Year
  Sex: Female
  Weight: 65.76 kg

DRUGS (1)
  1. ORENITRAM [Suspect]
     Active Substance: TREPROSTINIL
     Indication: PULMONARY HYPERTENSION
     Dosage: 1 MG, Q8H
     Route: 048
     Dates: start: 20141120

REACTIONS (6)
  - Right ventricular failure [Fatal]
  - Fluid overload [Unknown]
  - Loss of consciousness [Unknown]
  - Cardiorenal syndrome [Fatal]
  - Renal failure [Unknown]
  - Terminal state [Unknown]

NARRATIVE: CASE EVENT DATE: 201411
